FAERS Safety Report 7034593-5 (Version None)
Quarter: 2010Q4

REPORT INFORMATION
  Report Type: 
  Country: None (occurrence: None)
  Receive Date: 20101008
  Receipt Date: 20100927
  Transmission Date: 20110411
  Serious: Yes (Hospitalization, Other)
  Sender: FDA-Public Use
  Company Number: AU-JNJFOC-20100901623

PATIENT
  Sex: Female

DRUGS (3)
  1. TRAMADOL HCL [Suspect]
     Indication: PAIN
     Route: 048
  2. TRAMADOL HCL [Suspect]
     Indication: DEPRESSION
     Route: 048
  3. CYMBALTA [Interacting]
     Indication: PRODUCT USED FOR UNKNOWN INDICATION
     Route: 048

REACTIONS (6)
  - DRUG INTERACTION [None]
  - LABILE BLOOD PRESSURE [None]
  - MEMORY IMPAIRMENT [None]
  - MENTAL STATUS CHANGES [None]
  - RESTLESSNESS [None]
  - SEROTONIN SYNDROME [None]
